FAERS Safety Report 13028123 (Version 2)
Quarter: 2016Q4

REPORT INFORMATION
  Report Type: Spontaneous
  Country: GT (occurrence: GT)
  Receive Date: 20161214
  Receipt Date: 20161215
  Transmission Date: 20170207
  Serious: Yes (Other)
  Sender: FDA-Public Use
  Company Number: GT-JNJFOC-20161207824

PATIENT
  Age: 66 Year
  Sex: Female

DRUGS (4)
  1. LORAZEPAM. [Concomitant]
     Active Substance: LORAZEPAM
     Indication: DELIRIUM
     Route: 065
  2. HALOPERIDOL. [Suspect]
     Active Substance: HALOPERIDOL
     Indication: DELIRIUM
     Route: 042
  3. DEXMEDETOMIDINE. [Suspect]
     Active Substance: DEXMEDETOMIDINE
     Indication: DELIRIUM
     Route: 065
  4. FENTANYL. [Suspect]
     Active Substance: FENTANYL
     Indication: DELIRIUM
     Route: 065

REACTIONS (3)
  - Serotonin syndrome [Recovering/Resolving]
  - Product use issue [Unknown]
  - Off label use [Unknown]
